FAERS Safety Report 5245205-5 (Version None)
Quarter: 2007Q1

REPORT INFORMATION
  Report Type: 
  Country: None (occurrence: None)
  Receive Date: 20070223
  Receipt Date: 20070211
  Transmission Date: 20070707
  Serious: Yes (Death, Other)
  Sender: FDA-Public Use
  Company Number: KR-KINGPHARMUSA00001-K200700183

PATIENT

DRUGS (1)
  1. PITRESSIN [Suspect]
     Indication: HYPOTENSION
     Dosage: .02 U/MIN
     Route: 042

REACTIONS (2)
  - DERMATITIS BULLOUS [None]
  - SKIN NECROSIS [None]
